FAERS Safety Report 25396126 (Version 2)
Quarter: 2025Q3

REPORT INFORMATION
  Report Type: Spontaneous
  Country: JP (occurrence: JP)
  Receive Date: 20250604
  Receipt Date: 20250701
  Transmission Date: 20251020
  Serious: Yes (Hospitalization, Other)
  Sender: ASTELLAS
  Company Number: JP-ASTELLAS-2025-AER-029364

PATIENT
  Age: 67 Year

DRUGS (4)
  1. VYLOY [Suspect]
     Active Substance: ZOLBETUXIMAB-CLZB
     Indication: Gastric cancer
     Route: 065
     Dates: start: 20250521
  2. OXALIPLATIN [Suspect]
     Active Substance: OXALIPLATIN
     Indication: Product used for unknown indication
     Route: 065
     Dates: start: 20250521
  3. FLUOROURACIL [Suspect]
     Active Substance: FLUOROURACIL
     Indication: Product used for unknown indication
     Route: 065
     Dates: start: 20250521
  4. LEVOLEUCOVORIN CALCIUM [Concomitant]
     Active Substance: LEVOLEUCOVORIN CALCIUM
     Indication: Product used for unknown indication
     Route: 065
     Dates: start: 20250521

REACTIONS (3)
  - Vomiting [Recovered/Resolved]
  - Ammonia increased [Recovered/Resolved]
  - Hepatic cirrhosis [Recovered/Resolved]

NARRATIVE: CASE EVENT DATE: 20250521
